FAERS Safety Report 8473596-0 (Version None)
Quarter: 2012Q2

REPORT INFORMATION
  Report Type: 
  Country: None (occurrence: None)
  Receive Date: 20120628
  Receipt Date: 20110801
  Transmission Date: 20120825
  Serious: Yes (Other)
  Sender: FDA-Public Use
  Company Number: US-MYLANLABS-2011S1013457

PATIENT
  Age: 29 Year
  Sex: Male
  Weight: 77.11 kg

DRUGS (7)
  1. RISPERIDONE [Concomitant]
     Route: 048
  2. DEPAKOTE [Concomitant]
  3. CLOZAPINE [Suspect]
     Route: 048
     Dates: start: 20070101, end: 20110627
  4. LITHIUM CARBONATE [Concomitant]
  5. CLOZAPINE [Suspect]
     Indication: SCHIZOAFFECTIVE DISORDER
     Dosage: 1QAM + 4HS
     Route: 048
     Dates: start: 20070101, end: 20110627
  6. SYNTHROID [Concomitant]
  7. ALPRAZOLAM [Concomitant]

REACTIONS (1)
  - GRANULOCYTOPENIA [None]
